FAERS Safety Report 5280490-5 (Version None)
Quarter: 2007Q1

REPORT INFORMATION
  Report Type: 
  Country: None (occurrence: None)
  Receive Date: 20061229
  Receipt Date: 20060922
  Transmission Date: 20070707
  Serious: Yes (Other)
  Sender: FDA-Public Use
  Company Number: 2006UW16587

PATIENT
  Age: 94 Year
  Sex: Female
  Weight: 59.874 kg

DRUGS (8)
  1. CRESTOR [Suspect]
     Indication: BLOOD CHOLESTEROL INCREASED
     Dosage: 10 MG DAILY PO
     Route: 048
     Dates: start: 20060816
  2. DIOVAN [Concomitant]
  3. TENORMIN [Concomitant]
  4. NORVASC [Concomitant]
  5. ZYRTEC [Concomitant]
  6. LIPITOR [Concomitant]
  7. NITROGLYCERIN [Concomitant]
  8. BONIVA [Concomitant]

REACTIONS (4)
  - DIARRHOEA [None]
  - DYSURIA [None]
  - FREQUENT BOWEL MOVEMENTS [None]
  - VAGINAL BURNING SENSATION [None]
